FAERS Safety Report 22895032 (Version 3)
Quarter: 2023Q4

REPORT INFORMATION
  Report Type: Other
  Country: KR (occurrence: KR)
  Receive Date: 20230901
  Receipt Date: 20231030
  Transmission Date: 20240110
  Serious: Yes (Hospitalization)
  Sender: FDA-Public Use
  Company Number: KR-002147023-NVSC2023KR187818

PATIENT
  Age: 0 Year
  Sex: Female
  Weight: 1.6 kg

DRUGS (1)
  1. RANIBIZUMAB [Suspect]
     Active Substance: RANIBIZUMAB
     Indication: Retinopathy of prematurity
     Route: 050
     Dates: start: 20230426, end: 20230628

REACTIONS (1)
  - Bronchopulmonary dysplasia [Recovered/Resolved]

NARRATIVE: CASE EVENT DATE: 20230712
